FAERS Safety Report 9675057 (Version 1)
Quarter: 2013Q4

REPORT INFORMATION
  Report Type: Spontaneous
  Country: US (occurrence: None)
  Receive Date: 20131106
  Receipt Date: 20131106
  Transmission Date: 20140711
  Serious: Yes (Life-Threatening)
  Sender: FDA-Public Use
  Company Number: None

PATIENT
  Age: 68 Year
  Sex: Female
  Weight: 80 kg

DRUGS (1)
  1. PACLITAXEL [Suspect]
     Indication: NON-SMALL CELL LUNG CANCER
     Dosage: 80 MG Q WEEKLY X 6 WKS INTRAVENOUS PIGGY BACK
     Dates: start: 20131022

REACTIONS (8)
  - Unresponsive to stimuli [None]
  - Dyskinesia [None]
  - Vision blurred [None]
  - Visual impairment [None]
  - Disorientation [None]
  - Infusion related reaction [None]
  - Dyspnoea [None]
  - Wheezing [None]
